FAERS Safety Report 5309061-9 (Version None)
Quarter: 2007Q2

REPORT INFORMATION
  Report Type: 
  Country: None (occurrence: None)
  Receive Date: 20070420
  Receipt Date: 20070411
  Transmission Date: 20071010
  Serious: Yes (Death, Other)
  Sender: FDA-Public Use
  Company Number: 141-20785-07040604

PATIENT
  Sex: 0

DRUGS (1)
  1. THALOMID [Suspect]
     Indication: HEPATIC NEOPLASM MALIGNANT
     Dosage: ORAL
     Route: 048

REACTIONS (20)
  - CARDIAC FAILURE [None]
  - COAGULOPATHY [None]
  - CONSTIPATION [None]
  - DRUG TOXICITY [None]
  - FATIGUE [None]
  - HEPATIC FUNCTION ABNORMAL [None]
  - HEPATIC HAEMORRHAGE [None]
  - HYPERTENSION [None]
  - HYPONATRAEMIA [None]
  - LETHARGY [None]
  - NEUROPATHY [None]
  - NEUTROPENIA [None]
  - OEDEMA [None]
  - PRURITUS [None]
  - RASH [None]
  - RENAL FAILURE ACUTE [None]
  - SOMNOLENCE [None]
  - SUBARACHNOID HAEMORRHAGE [None]
  - THROMBOCYTOPENIA [None]
  - VOMITING [None]
